FAERS Safety Report 7075313-8 (Version None)
Quarter: 2010Q4

REPORT INFORMATION
  Report Type: 
  Country: None (occurrence: None)
  Receive Date: 20101030
  Receipt Date: 20100913
  Transmission Date: 20110411
  Serious: No
  Sender: FDA-Public Use
  Company Number: US-WYE-H16852410

PATIENT
  Sex: Female
  Weight: 72.19 kg

DRUGS (9)
  1. PRISTIQ [Suspect]
     Indication: DEPRESSION
     Route: 048
     Dates: start: 20100701, end: 20100101
  2. PRISTIQ [Suspect]
     Dosage: 100 MG UNSPECIFIED FREQUENCY
     Dates: start: 20100101
  3. PLAVIX [Concomitant]
  4. NIASPAN [Concomitant]
  5. RANEXA [Concomitant]
  6. ACETYLSALICYLIC ACID SRT [Concomitant]
  7. TRILIPIX [Concomitant]
  8. GLUCOPHAGE [Concomitant]
  9. TOPROL-XL [Concomitant]

REACTIONS (2)
  - CONDITION AGGRAVATED [None]
  - DIABETES MELLITUS [None]
